FAERS Safety Report 9848866 (Version 1)
Quarter: 2014Q1

REPORT INFORMATION
  Report Type: Spontaneous
  Country: IT (occurrence: IT)
  Receive Date: 20140128
  Receipt Date: 20140128
  Transmission Date: 20141002
  Serious: Yes (Other)
  Sender: FDA-Public Use
  Company Number: IT-MYLANLABS-2014S1001162

PATIENT
  Age: 60 Year
  Sex: Male

DRUGS (5)
  1. ALPRAZOLAM [Suspect]
     Indication: ANXIETY
     Dosage: 20 GTT TOTAL
     Route: 048
     Dates: start: 20131003, end: 20131208
  2. RIVOTRIL [Suspect]
     Indication: ANXIETY
     Dosage: 20 GTT DAILY
     Route: 048
     Dates: start: 20131003, end: 20131208
  3. ZOLOFT [Concomitant]
     Indication: PRODUCT USED FOR UNKNOWN INDICATION
     Route: 048
  4. EFEXOR [Concomitant]
     Indication: PRODUCT USED FOR UNKNOWN INDICATION
     Route: 048
     Dates: start: 20131206, end: 20131208
  5. SAMYR /00882301/ [Concomitant]
     Indication: PRODUCT USED FOR UNKNOWN INDICATION
     Route: 048
     Dates: start: 20131207, end: 20131207

REACTIONS (6)
  - Anxiety [Recovering/Resolving]
  - Asthenia [Recovering/Resolving]
  - Injury [Recovering/Resolving]
  - Confusional state [Recovering/Resolving]
  - Headache [Recovering/Resolving]
  - Drug abuse [Recovering/Resolving]
